FAERS Safety Report 8102904-5 (Version None)
Quarter: 2012Q1

REPORT INFORMATION
  Report Type: 
  Country: None (occurrence: None)
  Receive Date: 20120201
  Receipt Date: 20120126
  Transmission Date: 20120608
  Serious: Yes (Hospitalization, Other)
  Sender: FDA-Public Use
  Company Number: US-SANOFI-AVENTIS-2012SA005825

PATIENT
  Age: 50 Year
  Sex: Male
  Weight: 82.5 kg

DRUGS (4)
  1. PLACEBO [Suspect]
     Indication: PSORIASIS
     Route: 048
     Dates: start: 20111110, end: 20120107
  2. BLINDED THERAPY [Suspect]
     Indication: PSORIASIS
     Route: 048
     Dates: start: 20111110, end: 20120107
  3. AMBIEN [Suspect]
     Indication: SLEEP DISORDER
     Route: 048
     Dates: start: 20111128, end: 20120107
  4. HYDROXYZINE [Concomitant]
     Dates: start: 20111130

REACTIONS (4)
  - HYPERHIDROSIS [None]
  - HYPOKALAEMIA [None]
  - PALPITATIONS [None]
  - DYSPNOEA [None]
